FAERS Safety Report 15453573 (Version 4)
Quarter: 2019Q1

REPORT INFORMATION
  Report Type: Report from Study
  Country: US (occurrence: US)
  Receive Date: 20181001
  Receipt Date: 20190322
  Transmission Date: 20190417
  Serious: Yes (Hospitalization)
  Sender: FDA-Public Use
  Company Number: US-ACTELION-A-NJ2018-179422

PATIENT
  Age: 42 Year
  Sex: Female
  Weight: 81.63 kg

DRUGS (3)
  1. OPSUMIT [Suspect]
     Active Substance: MACITENTAN
     Indication: PULMONARY ARTERIAL HYPERTENSION
     Dosage: 10 MG, QD
     Route: 048
  2. REVATIO [Concomitant]
     Active Substance: SILDENAFIL CITRATE
  3. OXYGEN. [Concomitant]
     Active Substance: OXYGEN

REACTIONS (17)
  - Fatigue [Unknown]
  - Diagnostic procedure [Unknown]
  - Dizziness [Unknown]
  - Chest pain [Unknown]
  - Pneumonia [Unknown]
  - Bronchitis [Unknown]
  - Oxygen saturation decreased [Unknown]
  - Dyspnoea exertional [Unknown]
  - Loss of consciousness [Unknown]
  - Wolff-Parkinson-White syndrome [Unknown]
  - Head injury [Unknown]
  - Breathing-related sleep disorder [Unknown]
  - Tachycardia [Unknown]
  - Syncope [Unknown]
  - Cough [Unknown]
  - Fall [Unknown]
  - Heart rate increased [Unknown]

NARRATIVE: CASE EVENT DATE: 20180903
